FAERS Safety Report 17396729 (Version 1)
Quarter: 2020Q1

REPORT INFORMATION
  Report Type: Spontaneous
  Country: US (occurrence: US)
  Receive Date: 20200210
  Receipt Date: 20200210
  Transmission Date: 20200409
  Serious: Yes (Other)
  Sender: FDA-Public Use
  Company Number: US-CHIESI USA, INC.-US-2020CHI000075

PATIENT

DRUGS (1)
  1. BETHKIS [Suspect]
     Active Substance: TOBRAMYCIN
     Indication: BRONCHIECTASIS
     Dosage: 300 MG, QD
     Route: 055
     Dates: start: 20190321

REACTIONS (7)
  - Urinary retention [Unknown]
  - Underdose [Unknown]
  - Dizziness [Unknown]
  - Product use in unapproved indication [Not Recovered/Not Resolved]
  - Pollakiuria [Unknown]
  - Dyspnoea [Unknown]
  - Asthenia [Unknown]

NARRATIVE: CASE EVENT DATE: 20190321
